APPROVED DRUG PRODUCT: METAXALONE
Active Ingredient: METAXALONE
Strength: 800MG
Dosage Form/Route: TABLET;ORAL
Application: A040445 | Product #001 | TE Code: AB
Applicant: SANDOZ INC
Approved: Mar 31, 2010 | RLD: No | RS: No | Type: RX